FAERS Safety Report 8602558-5 (Version None)
Quarter: 2012Q3

REPORT INFORMATION
  Report Type: 
  Country: None (occurrence: None)
  Receive Date: 20120423
  Receipt Date: 20081209
  Transmission Date: 20120928
  Serious: Yes (Other)
  Sender: FDA-Public Use
  Company Number: PHEH2008US10947

PATIENT
  Sex: Female

DRUGS (5)
  1. PREVACID [Concomitant]
  2. NASACORT [Concomitant]
  3. FEMARA [Suspect]
     Indication: BREAST CANCER
     Dosage: UNK
     Dates: start: 20050101
  4. HYDROCHLOROTHIAZIDE [Concomitant]
  5. ATENOLOL [Concomitant]

REACTIONS (1)
  - OSTEOPOROSIS [None]
